FAERS Safety Report 4945892-2 (Version None)
Quarter: 2006Q1

REPORT INFORMATION
  Report Type: 
  Country: None (occurrence: None)
  Receive Date: 20060117
  Receipt Date: 20050118
  Transmission Date: 20060701
  Serious: Yes (Hospitalization)
  Sender: FDA-Public Use
  Company Number: A03200500173

PATIENT
  Age: 84 Year
  Sex: Female
  Weight: 67.1324 kg

DRUGS (3)
  1. PLAVIX [Suspect]
     Indication: CORONARY ARTERY OCCLUSION
     Dosage: 75 MG QD - ORAL
     Route: 048
     Dates: start: 20050106, end: 20050112
  2. PLAVIX [Suspect]
     Indication: STENT PLACEMENT
     Dosage: 75 MG QD - ORAL
     Route: 048
     Dates: start: 20050106, end: 20050112
  3. .. [Suspect]

REACTIONS (5)
  - ASTHENIA [None]
  - COLD SWEAT [None]
  - GASTRIC HAEMORRHAGE [None]
  - PALLOR [None]
  - PRURITUS [None]
